FAERS Safety Report 12911799 (Version 3)
Quarter: 2017Q3

REPORT INFORMATION
  Report Type: Spontaneous
  Country: US (occurrence: US)
  Receive Date: 20161104
  Receipt Date: 20170810
  Transmission Date: 20171127
  Serious: Yes (Congenital Anomaly, Other)
  Sender: FDA-Public Use
  Company Number: US-TEVA-708312ACC

PATIENT
  Sex: Female

DRUGS (5)
  1. PRENATAL VITAMINS [Concomitant]
     Active Substance: VITAMINS
     Dosage: 1 TAB DAILY
     Dates: start: 20161021
  2. FOLIC ACID. [Concomitant]
     Active Substance: FOLIC ACID
     Dosage: 1 TAB DAILY
     Dates: start: 20161021
  3. PARAGARD T 380A [Suspect]
     Active Substance: COPPER
     Indication: CONTRACEPTION
     Dates: start: 20160531, end: 20161024
  4. PARAGARD T 380A [Suspect]
     Active Substance: COPPER
     Dates: start: 20170727
  5. XANAX [Concomitant]
     Active Substance: ALPRAZOLAM
     Dosage: TID PRN
     Dates: start: 20151217, end: 20161021

REACTIONS (5)
  - Exposure during breast feeding [Unknown]
  - Pregnancy on contraceptive [Unknown]
  - Ankyloglossia congenital [Unknown]
  - Exposure during pregnancy [Unknown]
  - Live birth [Unknown]
